FAERS Safety Report 7937665-3 (Version None)
Quarter: 2011Q4

REPORT INFORMATION
  Report Type: 
  Country: None (occurrence: None)
  Receive Date: 20111123
  Receipt Date: 20111111
  Transmission Date: 20120403
  Serious: Yes (Hospitalization, Other)
  Sender: FDA-Public Use
  Company Number: PHHY2011AR099860

PATIENT
  Sex: Male

DRUGS (2)
  1. RASILEZ [Suspect]
     Indication: HYPERTENSION
     Dosage: UNK
     Dates: start: 20110401
  2. GALVUS MET [Concomitant]
     Dosage: UNK

REACTIONS (4)
  - CHEST PAIN [None]
  - PNEUMONIA [None]
  - COUGH [None]
  - DYSPNOEA [None]
